FAERS Safety Report 13375046 (Version 1)
Quarter: 2017Q1

REPORT INFORMATION
  Report Type: Spontaneous
  Country: US (occurrence: US)
  Receive Date: 20170327
  Receipt Date: 20170327
  Transmission Date: 20170429
  Serious: Yes (Hospitalization)
  Sender: FDA-Public Use
  Company Number: US-VIFOR (INTERNATIONAL) INC.-VIT-2017-03186

PATIENT
  Sex: Male

DRUGS (13)
  1. ALDACTONE [Concomitant]
     Active Substance: SPIRONOLACTONE
  2. SYSTANE (HYPROMELLOSE 2910 (4000 MPA.S)) [Concomitant]
     Active Substance: HYPROMELLOSE 2910 (4000 MPA.S)
  3. TORASEMIDE [Concomitant]
     Active Substance: TORSEMIDE
  4. ZYRTEC [Concomitant]
     Active Substance: CETIRIZINE HYDROCHLORIDE
  5. ENTRESTO [Concomitant]
     Active Substance: SACUBITRIL\VALSARTAN
  6. VELTASSA [Suspect]
     Active Substance: PATIROMER
     Indication: PRODUCT USED FOR UNKNOWN INDICATION
     Route: 048
     Dates: start: 20170131, end: 2017
  7. ALLOPURINOL. [Concomitant]
     Active Substance: ALLOPURINOL
  8. COREG [Concomitant]
     Active Substance: CARVEDILOL
  9. IPRATROPIUM [Concomitant]
     Active Substance: IPRATROPIUM
  10. XARELTO [Concomitant]
     Active Substance: RIVAROXABAN
  11. PRESERVISION [Concomitant]
     Active Substance: MINERALS\VITAMINS
  12. OXYCODONE [Concomitant]
     Active Substance: OXYCODONE
  13. VITAMINS NOS [Concomitant]
     Active Substance: VITAMINS

REACTIONS (1)
  - Adverse event [Unknown]

NARRATIVE: CASE EVENT DATE: 2017
